FAERS Safety Report 15439892 (Version 1)
Quarter: 2018Q4

REPORT INFORMATION
  Report Type: Spontaneous
  Country: DE (occurrence: DE)
  Receive Date: 20180928
  Receipt Date: 20180928
  Transmission Date: 20190204
  Serious: Yes (Hospitalization)
  Sender: FDA-Public Use
  Company Number: DE-TEVA-2018-DE-956843

PATIENT
  Age: 76 Year
  Sex: Male
  Weight: 100 kg

DRUGS (3)
  1. MTX (METHOTREXATE) [Suspect]
     Active Substance: METHOTREXATE
     Indication: PSORIATIC ARTHROPATHY
  2. ASPIRIN. [Concomitant]
     Active Substance: ASPIRIN
  3. MTX (METHOTREXATE) [Suspect]
     Active Substance: METHOTREXATE
     Indication: PSORIASIS
     Route: 058
     Dates: start: 201604

REACTIONS (1)
  - Cerebrovascular accident [Recovered/Resolved]

NARRATIVE: CASE EVENT DATE: 20171212
